FAERS Safety Report 6546089-5 (Version None)
Quarter: 2010Q1

REPORT INFORMATION
  Report Type: 
  Country: None (occurrence: None)
  Receive Date: 20100122
  Receipt Date: 20100120
  Transmission Date: 20100710
  Serious: Yes (Other)
  Sender: FDA-Public Use
  Company Number: US-ASTRAZENECA-2009UW08443

PATIENT
  Age: 737 Month
  Sex: Male
  Weight: 101.6 kg

DRUGS (46)
  1. SEROQUEL [Suspect]
     Indication: BIPOLAR DISORDER
     Dosage: 25 TO 200 MG
     Route: 048
     Dates: start: 20021106
  2. SEROQUEL [Suspect]
     Indication: OBSESSIVE-COMPULSIVE DISORDER
     Dosage: 25 TO 200 MG
     Route: 048
     Dates: start: 20021106
  3. SEROQUEL [Suspect]
     Indication: GENERALISED ANXIETY DISORDER
     Dosage: 25 TO 200 MG
     Route: 048
     Dates: start: 20021106
  4. SEROQUEL [Suspect]
     Indication: ATTENTION DEFICIT/HYPERACTIVITY DISORDER
     Dosage: 25 TO 200 MG
     Route: 048
     Dates: start: 20021106
  5. SEROQUEL [Suspect]
     Route: 048
     Dates: start: 20030304
  6. SEROQUEL [Suspect]
     Route: 048
     Dates: start: 20030304
  7. SEROQUEL [Suspect]
     Route: 048
     Dates: start: 20030304
  8. SEROQUEL [Suspect]
     Route: 048
     Dates: start: 20030304
  9. SEROQUEL [Suspect]
     Dosage: 200 TO 300 MG
     Route: 048
     Dates: start: 20070612
  10. SEROQUEL [Suspect]
     Dosage: 200 TO 300 MG
     Route: 048
     Dates: start: 20070612
  11. SEROQUEL [Suspect]
     Dosage: 200 TO 300 MG
     Route: 048
     Dates: start: 20070612
  12. SEROQUEL [Suspect]
     Dosage: 200 TO 300 MG
     Route: 048
     Dates: start: 20070612
  13. ABILIFY [Concomitant]
     Dosage: 10 TO 15 MG
     Route: 048
     Dates: start: 20030501, end: 20080101
  14. GEODON [Concomitant]
     Dosage: 20 TO 80 MG
     Dates: start: 20090101
  15. GEODON [Concomitant]
     Dosage: 20 TO 80 MG
     Dates: start: 20051001, end: 20070101
  16. LITHOBID [Concomitant]
     Dates: start: 20061201, end: 20070101
  17. NORTRIPTYLINE [Concomitant]
     Dosage: 25 TO 100 MG
     Dates: start: 20040801, end: 20060501
  18. PROVIGIL [Concomitant]
     Dosage: 100 TO 200 MG
     Dates: start: 20040501, end: 20050901
  19. BUSPIRONE HCL [Concomitant]
     Dosage: 5 TO 30 MG
     Dates: start: 20040401, end: 20050701
  20. ZONEGRAN [Concomitant]
     Dosage: 100 TO 300 MG
     Dates: start: 20040601, end: 20040701
  21. TRAZODONE HCL [Concomitant]
     Dates: start: 20080301, end: 20081001
  22. LEXAPRO [Concomitant]
     Dosage: 10 TO 40 MG
     Dates: start: 20021101, end: 20071201
  23. LEXAPRO [Concomitant]
     Dates: start: 20030304
  24. CYMBALTA [Concomitant]
     Dosage: 20 TO 60 MG
     Dates: start: 20041001, end: 20080701
  25. LORAZEPAM [Concomitant]
     Dates: start: 20040101, end: 20080301
  26. LORAZEPAM [Concomitant]
     Dates: start: 20030304
  27. VISTARIL [Concomitant]
     Dates: start: 20070901, end: 20071101
  28. WELLBUTRIN [Concomitant]
  29. TOPAMAX [Concomitant]
     Dates: start: 20070404
  30. TOPAMAX [Concomitant]
     Dates: start: 20070515
  31. SERZONE [Concomitant]
     Dosage: 150 TO 450 MG
     Dates: start: 20020101
  32. METADATE CD [Concomitant]
     Dates: start: 20030304
  33. METADATE CD [Concomitant]
     Dates: start: 20030401, end: 20031201
  34. ATIVAN [Concomitant]
     Dates: start: 20030201, end: 20030801
  35. CONCERTA [Concomitant]
     Dates: start: 20040101, end: 20040301
  36. MAPROTILINE [Concomitant]
     Dates: start: 20040301, end: 20040401
  37. BISOPROLOL FUMARATE AND HYDROCHLOROTHIAZIDE [Concomitant]
     Dosage: 5/6.25
     Dates: start: 20041101
  38. BISOPROLOL FUMARATE AND HYDROCHLOROTHIAZIDE [Concomitant]
     Dosage: 10-6.25 MG
     Dates: start: 20070423
  39. AZITHROMYCIN [Concomitant]
     Dates: start: 20061001
  40. LITHIUM CARBONATE ER [Concomitant]
     Dates: start: 20061201
  41. CLONAZEPAM [Concomitant]
     Dates: start: 20090201
  42. DEPAKOTE [Concomitant]
     Dosage: 1000MG-1250MG DAILY
     Route: 048
     Dates: start: 20030623
  43. PROTONIX [Concomitant]
     Dates: start: 20070319
  44. SIMVASTATIN [Concomitant]
     Dates: start: 20070423
  45. CEPHALEXIN [Concomitant]
     Dates: start: 20070508
  46. CHLORHEXIDINE GLUCONATE [Concomitant]
     Dosage: 0.12% RINSE
     Dates: start: 20070508

REACTIONS (4)
  - DIABETES MELLITUS [None]
  - NEUROPATHY PERIPHERAL [None]
  - SUICIDAL IDEATION [None]
  - TYPE 2 DIABETES MELLITUS [None]
